FAERS Safety Report 17004483 (Version 2)
Quarter: 2019Q4

REPORT INFORMATION
  Report Type: Spontaneous
  Country: US (occurrence: US)
  Receive Date: 20191107
  Receipt Date: 20191230
  Transmission Date: 20200122
  Serious: No
  Sender: FDA-Public Use
  Company Number: US-PFIZER INC-2015468324

PATIENT
  Age: 60 Year
  Sex: Male
  Weight: 121 kg

DRUGS (2)
  1. LYRICA [Suspect]
     Active Substance: PREGABALIN
     Indication: POLYNEUROPATHY
     Dosage: 225 MG, 2X/DAY (1 CAPSULE BY MOUTH 2 TIMES DAILY)
     Route: 048
  2. LYRICA [Suspect]
     Active Substance: PREGABALIN
     Indication: NEUROPATHY PERIPHERAL
     Dosage: 225 MG, 2X/DAY (3 CAPS BY MOUTH 2 TIMES DAILY)
     Route: 048

REACTIONS (1)
  - Withdrawal syndrome [Unknown]
